FAERS Safety Report 5553459-0 (Version None)
Quarter: 2007Q4

REPORT INFORMATION
  Report Type: 
  Country: None (occurrence: None)
  Receive Date: 20071213
  Receipt Date: 20071203
  Transmission Date: 20080405
  Serious: Yes (Hospitalization)
  Sender: FDA-Public Use
  Company Number: BE-WYE-H01559707

PATIENT
  Sex: Male
  Weight: 104 kg

DRUGS (1)
  1. BENEFIX [Suspect]
     Indication: FACTOR IX DEFICIENCY
     Dosage: DOSE, FREQUENCY, AND DATES OF THERAPY
     Route: 065

REACTIONS (1)
  - HIP ARTHROPLASTY [None]
